FAERS Safety Report 9305804 (Version 1)
Quarter: 2013Q2

REPORT INFORMATION
  Report Type: Spontaneous
  Country: US (occurrence: None)
  Receive Date: 20130522
  Receipt Date: 20130522
  Transmission Date: 20140414
  Serious: Yes (Other)
  Sender: FDA-Public Use
  Company Number: None

PATIENT
  Sex: Male
  Weight: 99.79 kg

DRUGS (2)
  1. ALFAZOSIN [Suspect]
     Indication: BENIGN PROSTATIC HYPERPLASIA
     Dosage: PERIOR TO 7/11
  2. ALFAZOSIN [Suspect]
     Indication: HYPERTROPHY
     Dosage: PERIOR TO 7/11

REACTIONS (3)
  - Urinary retention [None]
  - Ejaculation failure [None]
  - Product substitution issue [None]
